FAERS Safety Report 5639867-8 (Version None)
Quarter: 2008Q1

REPORT INFORMATION
  Report Type: 
  Country: None (occurrence: None)
  Receive Date: 20080225
  Receipt Date: 20080213
  Transmission Date: 20080703
  Serious: No
  Sender: FDA-Public Use
  Company Number: B0506666A

PATIENT
  Age: 11 Year
  Sex: Female

DRUGS (1)
  1. RELENZA [Suspect]
     Indication: DRUG USE FOR UNKNOWN INDICATION
     Dosage: 10 MG / TWICE PER DAY / INHALED
     Route: 055

REACTIONS (1)
  - ABNORMAL BEHAVIOUR [None]
